FAERS Safety Report 15864520 (Version 1)
Quarter: 2019Q1

REPORT INFORMATION
  Report Type: Report from Study
  Country: US (occurrence: US)
  Receive Date: 20190124
  Receipt Date: 20190124
  Transmission Date: 20190417
  Serious: Yes (Other)
  Sender: FDA-Public Use
  Company Number: US-TEVA-2019-US-999505

PATIENT
  Age: 45 Year
  Sex: Female

DRUGS (1)
  1. COPAXONE [Suspect]
     Active Substance: GLATIRAMER ACETATE
     Indication: MULTIPLE SCLEROSIS
     Route: 058
     Dates: start: 20181114, end: 20190101

REACTIONS (10)
  - Dizziness [Recovered/Resolved]
  - Fatigue [Recovered/Resolved]
  - Swollen tongue [Recovered/Resolved]
  - Blood pressure increased [Unknown]
  - Burning sensation [Recovered/Resolved]
  - Nausea [Recovered/Resolved]
  - Hypersensitivity [Unknown]
  - Chest pain [Recovered/Resolved]
  - Headache [Recovered/Resolved]
  - Urticaria [Recovered/Resolved]

NARRATIVE: CASE EVENT DATE: 20181119
